FAERS Safety Report 6128671-2 (Version None)
Quarter: 2009Q1

REPORT INFORMATION
  Report Type: 
  Country: None (occurrence: None)
  Receive Date: 20090319
  Receipt Date: 20090305
  Transmission Date: 20090719
  Serious: Yes (Hospitalization)
  Sender: FDA-Public Use
  Company Number: 1000003266

PATIENT
  Age: 62 Year
  Sex: Male

DRUGS (1)
  1. MEMANTINE HCL [Suspect]
     Indication: DEMENTIA ALZHEIMER'S TYPE
     Dosage: 15 MG (15 MG, 1 IN1 D), ORAL
     Route: 048
     Dates: start: 20070301, end: 20081203

REACTIONS (3)
  - CONGESTIVE CARDIOMYOPATHY [None]
  - SINUS ARRHYTHMIA [None]
  - TACHYCARDIA PAROXYSMAL [None]
